FAERS Safety Report 21224844 (Version 1)
Quarter: 2022Q3

REPORT INFORMATION
  Report Type: Spontaneous
  Country: US (occurrence: US)
  Receive Date: 20220817
  Receipt Date: 20220817
  Transmission Date: 20221027
  Serious: No
  Sender: FDA-Public Use
  Company Number: US-OTSUKA-2021_029752

PATIENT
  Age: 34 Year
  Sex: Male

DRUGS (2)
  1. ABILIFY MAINTENA [Suspect]
     Active Substance: ARIPIPRAZOLE
     Indication: Schizophrenia
     Dosage: 400 MG EVERY 3 WEEKS (21 DAYS)
     Route: 065
  2. ABILIFY MAINTENA [Suspect]
     Active Substance: ARIPIPRAZOLE
     Indication: Mania

REACTIONS (8)
  - Feeling abnormal [Unknown]
  - Psychotic disorder [Not Recovered/Not Resolved]
  - Weight decreased [Unknown]
  - Agitation [Unknown]
  - Inappropriate schedule of product administration [Not Recovered/Not Resolved]
  - Product storage error [Unknown]
  - Drug ineffective for unapproved indication [Unknown]
  - Imprisonment [Unknown]

NARRATIVE: CASE EVENT DATE: 20210806
